FAERS Safety Report 8299540-7 (Version None)
Quarter: 2012Q2

REPORT INFORMATION
  Report Type: 
  Country: None (occurrence: None)
  Receive Date: 20120419
  Receipt Date: 20120417
  Transmission Date: 20120825
  Serious: Yes (Life-Threatening)
  Sender: FDA-Public Use
  Company Number: CHPA2012TR008909

PATIENT
  Sex: Female
  Weight: 62 kg

DRUGS (3)
  1. THERAFLU UNKNOWN [Suspect]
     Indication: ANALGESIC THERAPY
     Dosage: 10 DF, ONCE/SINGLE
     Route: 048
     Dates: start: 20120410, end: 20120410
  2. MUSCORIL [Suspect]
     Dosage: 16 DF, ONCE/SINGLE
     Route: 048
     Dates: start: 20120410
  3. ORNIDAZOLE [Suspect]
     Indication: ANTIFUNGAL TREATMENT
     Dosage: 3 DF, ONCE/SINGLE
     Route: 048
     Dates: start: 20120410, end: 20120410

REACTIONS (2)
  - INTENTIONAL OVERDOSE [None]
  - SUICIDE ATTEMPT [None]
